FAERS Safety Report 12500375 (Version 2)
Quarter: 2016Q3

REPORT INFORMATION
  Report Type: Spontaneous
  Country: US (occurrence: US)
  Receive Date: 20160627
  Receipt Date: 20160721
  Transmission Date: 20161109
  Serious: No
  Sender: FDA-Public Use
  Company Number: US-PFIZER INC-2016301678

PATIENT
  Age: 60 Year
  Sex: Female

DRUGS (4)
  1. LISINOPRIL. [Concomitant]
     Active Substance: LISINOPRIL
  2. BIOTIN [Concomitant]
     Active Substance: BIOTIN
  3. ECOTRIN [Concomitant]
     Active Substance: ASPIRIN
  4. XELJANZ XR [Suspect]
     Active Substance: TOFACITINIB CITRATE
     Indication: RHEUMATOID ARTHRITIS
     Dosage: 11 MG, DAILY
     Route: 048
     Dates: start: 201604

REACTIONS (4)
  - Muscle spasms [Recovered/Resolved]
  - Diarrhoea [Recovered/Resolved]
  - Haemorrhoidal haemorrhage [Recovered/Resolved]
  - Abdominal pain upper [Recovered/Resolved]
